FAERS Safety Report 16295476 (Version 1)
Quarter: 2019Q2

REPORT INFORMATION
  Report Type: Spontaneous
  Country: US (occurrence: US)
  Receive Date: 20190509
  Receipt Date: 20190509
  Transmission Date: 20190711
  Serious: No
  Sender: FDA-Public Use
  Company Number: US-ALKERMES INC.-ALK-2018-004799

PATIENT
  Age: 39 Year
  Sex: Male

DRUGS (1)
  1. VIVITROL [Suspect]
     Active Substance: NALTREXONE
     Indication: PRODUCT USED FOR UNKNOWN INDICATION
     Dosage: 380 MG, QMO
     Route: 030
     Dates: start: 20180802

REACTIONS (5)
  - Injection site pain [Unknown]
  - Injection site reaction [Unknown]
  - Product preparation error [Unknown]
  - Muscle spasms [Unknown]
  - Single component of a two-component product administered [Unknown]

NARRATIVE: CASE EVENT DATE: 20180802
